FAERS Safety Report 9642416 (Version 1)
Quarter: 2013Q4

REPORT INFORMATION
  Report Type: Spontaneous
  Country: US (occurrence: US)
  Receive Date: 20131024
  Receipt Date: 20131024
  Transmission Date: 20140711
  Serious: Yes (Hospitalization)
  Sender: FDA-Public Use
  Company Number: US-ROCHE-1292900

PATIENT
  Sex: Female

DRUGS (1)
  1. XELODA [Suspect]
     Indication: UTERINE CANCER
     Route: 048
     Dates: start: 20110706, end: 20131020

REACTIONS (3)
  - Haemoptysis [Unknown]
  - Neoplasm [Unknown]
  - Drug ineffective [Unknown]
